FAERS Safety Report 6376603-4 (Version None)
Quarter: 2009Q3

REPORT INFORMATION
  Report Type: 
  Country: None (occurrence: None)
  Receive Date: 20090925
  Receipt Date: 20090915
  Transmission Date: 20100115
  Serious: Yes (Hospitalization, Other)
  Sender: FDA-Public Use
  Company Number: US-JNJFOC-20090306482

PATIENT
  Sex: Female
  Weight: 82.74 kg

DRUGS (10)
  1. REMICADE [Suspect]
     Route: 042
     Dates: start: 20070529
  2. REMICADE [Suspect]
     Route: 042
     Dates: start: 20070529
  3. REMICADE [Suspect]
     Route: 042
     Dates: start: 20070529
  4. REMICADE [Suspect]
     Route: 042
     Dates: start: 20070529
  5. REMICADE [Suspect]
     Route: 042
     Dates: start: 20070529
  6. REMICADE [Suspect]
     Route: 042
     Dates: start: 20070529
  7. REMICADE [Suspect]
     Route: 042
     Dates: start: 20070529
  8. REMICADE [Suspect]
     Route: 042
     Dates: start: 20070529
  9. REMICADE [Suspect]
     Route: 042
     Dates: start: 20070529
  10. REMICADE [Suspect]
     Indication: RHEUMATOID ARTHRITIS
     Route: 042
     Dates: start: 20070529

REACTIONS (3)
  - COLONIC STENOSIS [None]
  - DIVERTICULUM [None]
  - FISTULA [None]
